FAERS Safety Report 9509533 (Version 1)
Quarter: 2013Q3

REPORT INFORMATION
  Report Type: Spontaneous
  Country: US (occurrence: US)
  Receive Date: 20130909
  Receipt Date: 20130909
  Transmission Date: 20140515
  Serious: No
  Sender: FDA-Public Use
  Company Number: US-BRISTOL-MYERS SQUIBB COMPANY-17257551

PATIENT
  Age: 80 Year
  Sex: Male
  Weight: 99.77 kg

DRUGS (7)
  1. ABILIFY [Suspect]
     Indication: PANIC ATTACK
  2. ABILIFY [Suspect]
     Indication: ABNORMAL DREAMS
  3. ABILIFY [Suspect]
     Indication: ANXIETY
  4. WELLBUTRIN [Concomitant]
     Dosage: AT NIGHT
  5. XANAX [Concomitant]
     Dosage: 1/2 TABLET IN THE MORNING AND 1 AT NIGHT
  6. WARFARIN SODIUM [Concomitant]
     Indication: CORONARY ARTERY BYPASS
  7. ASPIRIN [Concomitant]
     Indication: CORONARY ARTERY BYPASS

REACTIONS (3)
  - Insomnia [Unknown]
  - Restlessness [Recovered/Resolved]
  - Memory impairment [Unknown]
